FAERS Safety Report 25734401 (Version 1)
Quarter: 2025Q3

REPORT INFORMATION
  Report Type: Spontaneous
  Country: US (occurrence: US)
  Receive Date: 20250828
  Receipt Date: 20250828
  Transmission Date: 20251021
  Serious: Yes (Other)
  Sender: AMGEN
  Company Number: US-AMGEN-USASP2025168068

PATIENT
  Age: 51 Year
  Sex: Male

DRUGS (2)
  1. BEVACIZUMAB [Suspect]
     Active Substance: BEVACIZUMAB
     Indication: Central nervous system lesion
     Route: 065
  2. BEVACIZUMAB [Suspect]
     Active Substance: BEVACIZUMAB
     Indication: Astrocytoma, low grade
     Route: 065

REACTIONS (4)
  - Astrocytoma, low grade [Recovering/Resolving]
  - Glioma [Unknown]
  - Drug effective for unapproved indication [Unknown]
  - Off label use [Unknown]
